FAERS Safety Report 7777488-1 (Version None)
Quarter: 2011Q3

REPORT INFORMATION
  Report Type: 
  Country: None (occurrence: None)
  Receive Date: 20110926
  Receipt Date: 20110914
  Transmission Date: 20111222
  Serious: Yes (Hospitalization, Disabling)
  Sender: FDA-Public Use
  Company Number: US-BAYER-2011-086382

PATIENT
  Age: 64 Year
  Sex: Male

DRUGS (1)
  1. AVELOX [Suspect]
     Indication: SINUSITIS
     Dosage: 400 MG, QD
     Dates: start: 20110726

REACTIONS (3)
  - IRITIS [None]
  - DACRYOSTENOSIS ACQUIRED [None]
  - INTRAOCULAR PRESSURE INCREASED [None]
